FAERS Safety Report 15479053 (Version 3)
Quarter: 2018Q4

REPORT INFORMATION
  Report Type: Report from Study
  Country: US (occurrence: US)
  Receive Date: 20181009
  Receipt Date: 20181023
  Transmission Date: 20190205
  Serious: Yes (Death, Hospitalization, Other)
  Sender: FDA-Public Use
  Company Number: US-GILEAD-2018-0363153

PATIENT
  Age: 20 Year
  Sex: Female
  Weight: 81.8 kg

DRUGS (8)
  1. OXYGEN. [Concomitant]
     Active Substance: OXYGEN
  2. ORENITRAM [Suspect]
     Active Substance: TREPROSTINIL
     Indication: PULMONARY HYPERTENSION
     Dosage: 6.75 MG, QID
     Route: 065
     Dates: start: 20170315
  3. ADCIRCA [Concomitant]
     Active Substance: TADALAFIL
  4. REMODULIN [Concomitant]
     Active Substance: TREPROSTINIL
  5. NITRIC OXIDE. [Concomitant]
     Active Substance: NITRIC OXIDE
  6. HEPARIN [Concomitant]
     Active Substance: HEPARIN SODIUM
  7. AMBRISENTAN [Suspect]
     Active Substance: AMBRISENTAN
     Dosage: 10 MG, QD
     Route: 065
     Dates: start: 20180912
  8. AMBRISENTAN [Suspect]
     Active Substance: AMBRISENTAN
     Indication: PULMONARY ARTERIAL HYPERTENSION
     Dosage: 10 MG, QD
     Route: 065
     Dates: start: 20141017, end: 20180815

REACTIONS (9)
  - Flushing [Unknown]
  - Right ventricular failure [Fatal]
  - Diarrhoea [Unknown]
  - Pulmonary embolism [Fatal]
  - Joint swelling [Unknown]
  - Nasal congestion [Unknown]
  - Headache [Unknown]
  - Peripheral swelling [Unknown]
  - Hot flush [Unknown]

NARRATIVE: CASE EVENT DATE: 20180929
